FAERS Safety Report 8547030-6 (Version None)
Quarter: 2012Q3

REPORT INFORMATION
  Report Type: 
  Country: None (occurrence: None)
  Receive Date: 20120727
  Receipt Date: 20120313
  Transmission Date: 20120928
  Serious: No
  Sender: FDA-Public Use
  Company Number: US-ASTRAZENECA-2012SE17062

PATIENT
  Age: 36 Year
  Sex: Female
  Weight: 77.1 kg

DRUGS (5)
  1. MULTI-VITAMINS [Concomitant]
  2. SEROQUEL XR [Suspect]
     Route: 048
     Dates: start: 20120201
  3. SEROQUEL XR [Suspect]
     Indication: SCHIZOAFFECTIVE DISORDER
     Route: 048
     Dates: start: 20111001, end: 20120101
  4. SEROQUEL XR [Suspect]
     Route: 048
     Dates: start: 20120101, end: 20120201
  5. LOVAZA [Concomitant]

REACTIONS (3)
  - DRUG PRESCRIBING ERROR [None]
  - WEIGHT INCREASED [None]
  - INCREASED APPETITE [None]
